FAERS Safety Report 5939671-7 (Version None)
Quarter: 2008Q4

REPORT INFORMATION
  Report Type: 
  Country: None (occurrence: None)
  Receive Date: 20081030
  Receipt Date: 20081030
  Transmission Date: 20090506
  Serious: Yes (Life-Threatening, Hospitalization)
  Sender: FDA-Public Use
  Company Number: None

PATIENT
  Age: 46 Year
  Sex: Female
  Weight: 52.1637 kg

DRUGS (2)
  1. YAZ [Suspect]
     Indication: HAEMORRHAGE
  2. YAZ [Suspect]
     Indication: HORMONE LEVEL ABNORMAL

REACTIONS (4)
  - DEEP VEIN THROMBOSIS [None]
  - MUSCLE STRAIN [None]
  - OEDEMA PERIPHERAL [None]
  - PULMONARY EMBOLISM [None]
